FAERS Safety Report 21621403 (Version 1)
Quarter: 2022Q4

REPORT INFORMATION
  Report Type: Spontaneous
  Country: US (occurrence: None)
  Receive Date: 20221118
  Receipt Date: 20221118
  Transmission Date: 20230113
  Serious: No
  Sender: FDA-Public Use
  Company Number: None

PATIENT
  Age: 12 Year
  Sex: Male

DRUGS (1)
  1. ATOMOXETINE [Suspect]
     Active Substance: ATOMOXETINE
     Dosage: FREQUENCY : DAILY;?
     Route: 048
     Dates: start: 20191101

REACTIONS (3)
  - Aggression [None]
  - Agitation [None]
  - Product substitution issue [None]

NARRATIVE: CASE EVENT DATE: 20191101
